FAERS Safety Report 14454527 (Version 1)
Quarter: 2018Q1

REPORT INFORMATION
  Report Type: Spontaneous
  Country: BR (occurrence: BR)
  Receive Date: 20180129
  Receipt Date: 20180129
  Transmission Date: 20180509
  Serious: Yes (Death, Other)
  Sender: FDA-Public Use
  Company Number: BR-ALEXION-A201800974

PATIENT
  Age: 89 Year
  Sex: Female

DRUGS (2)
  1. SOLIRIS [Suspect]
     Active Substance: ECULIZUMAB
     Indication: PAROXYSMAL NOCTURNAL HAEMOGLOBINURIA
     Dosage: 600 MG, QW
     Route: 042
     Dates: start: 20170222, end: 20170316
  2. SOLIRIS [Suspect]
     Active Substance: ECULIZUMAB
     Dosage: 900 MG, Q2W
     Route: 042
     Dates: start: 20170323

REACTIONS (6)
  - Uterine cancer [Fatal]
  - Metastasis [Fatal]
  - Female genital tract fistula [Unknown]
  - Ovarian cancer [Fatal]
  - Vesical fistula [Unknown]
  - Hepatic cancer [Fatal]

NARRATIVE: CASE EVENT DATE: 201712
